FAERS Safety Report 19969989 (Version 2)
Quarter: 2021Q4

REPORT INFORMATION
  Report Type: Spontaneous
  Country: JP (occurrence: JP)
  Receive Date: 20211019
  Receipt Date: 20211025
  Transmission Date: 20220303
  Serious: Yes (Life-Threatening, Other)
  Sender: FDA-Public Use
  Company Number: JP-TEVA TAKEDA YAKUHIN-2021-JP-005063J

PATIENT
  Age: 82 Year
  Sex: Male

DRUGS (1)
  1. ASPIRIN\LANSOPRAZOLE [Suspect]
     Active Substance: ASPIRIN\LANSOPRAZOLE
     Indication: Product used for unknown indication
     Dosage: 1 DOSAGE FORM = 100MG ASPIRIN + 15MG LANSOPRAZOLEDOSAGE IS UNKNOWN
     Route: 048

REACTIONS (2)
  - Neoplasm malignant [Not Recovered/Not Resolved]
  - Dysphagia [Not Recovered/Not Resolved]
